FAERS Safety Report 5706670-X (Version None)
Quarter: 2008Q2

REPORT INFORMATION
  Report Type: 
  Country: None (occurrence: None)
  Receive Date: 20080414
  Receipt Date: 20080414
  Transmission Date: 20081010
  Serious: No
  Sender: FDA-Public Use
  Company Number: None

PATIENT
  Age: 65 Year
  Sex: Male

DRUGS (5)
  1. TARCEVA [Suspect]
     Indication: LUNG NEOPLASM MALIGNANT
     Dosage: 150MG ONCE QD PO
     Route: 048
     Dates: start: 20080307
  2. COMBIVENT [Concomitant]
  3. DUONEB [Concomitant]
  4. PRILOSEC [Concomitant]
  5. ADVAIR DISKUS 250/50 [Concomitant]

REACTIONS (3)
  - RASH [None]
  - SWELLING [None]
  - SWELLING FACE [None]
